FAERS Safety Report 7894895-7 (Version None)
Quarter: 2011Q4

REPORT INFORMATION
  Report Type: 
  Country: None (occurrence: None)
  Receive Date: 20111106
  Receipt Date: 20110819
  Transmission Date: 20120403
  Serious: No
  Sender: FDA-Public Use
  Company Number: US-AMGEN-USASP2011042455

PATIENT
  Age: 68 Year
  Sex: Female
  Weight: 74.83 kg

DRUGS (13)
  1. PRASTERONE [Concomitant]
     Dosage: UNK
  2. TYLENOL-500 [Concomitant]
     Dosage: 325 MG, UNK
  3. VITAMIN D [Concomitant]
     Dosage: 1000 IU, UNK
  4. LEVOTHROID [Concomitant]
     Dosage: 25 MUG, UNK
  5. ENBREL [Suspect]
     Indication: PRODUCT USED FOR UNKNOWN INDICATION
     Dosage: 50 MG, QWK
     Route: 058
  6. METHOTREXATE [Concomitant]
     Dosage: 2.5 MG, UNK
  7. ZYRTEC [Concomitant]
     Dosage: 10 MG, UNK
  8. HYDROXYZINE HCL [Concomitant]
     Dosage: 10 MG, UNK
  9. CYANOCOBALAMIN [Concomitant]
     Dosage: 1000 MUG, UNK
  10. HYDROXYCHLOROQUINE SULFATE [Concomitant]
     Dosage: 200 MG, UNK
  11. ADVAIR DISKUS 100/50 [Concomitant]
     Dosage: UNK
  12. TESTOSTERONE CYPIONATE [Concomitant]
     Dosage: 100 MG, UNK
  13. ESTRASORB [Concomitant]
     Dosage: UNK

REACTIONS (2)
  - DRUG INEFFECTIVE [None]
  - JOINT DESTRUCTION [None]
